FAERS Safety Report 26109367 (Version 1)
Quarter: 2025Q4

REPORT INFORMATION
  Report Type: Spontaneous
  Country: US (occurrence: None)
  Receive Date: 20251126
  Receipt Date: 20251126
  Transmission Date: 20260117
  Serious: Yes (Hospitalization)
  Sender: FDA-CTU
  Company Number: None

PATIENT
  Sex: Male
  Weight: 75.15 kg

DRUGS (1)
  1. ICATIBANT ACETATE [Suspect]
     Active Substance: ICATIBANT ACETATE
     Indication: Immune system disorder
     Dosage: 30 MG/ML AS NEEDED SUBCUTANEOUS
     Route: 058
     Dates: start: 20250114

REACTIONS (4)
  - Angioedema [None]
  - Cardiac disorder [None]
  - Therapy interrupted [None]
  - Fluid retention [None]
